FAERS Safety Report 13286040 (Version 5)
Quarter: 2017Q2

REPORT INFORMATION
  Report Type: Spontaneous
  Country: US (occurrence: US)
  Receive Date: 20170301
  Receipt Date: 20170519
  Transmission Date: 20170830
  Serious: Yes (Other)
  Sender: FDA-Public Use
  Company Number: US-ALLERGAN-1707451US

PATIENT
  Age: 51 Year
  Sex: Male

DRUGS (1)
  1. LUMIGAN [Suspect]
     Active Substance: BIMATOPROST
     Indication: GLAUCOMA
     Dosage: 4 GTT, QPM
     Route: 047
     Dates: start: 2015

REACTIONS (3)
  - Intraocular pressure increased [Recovering/Resolving]
  - Wrong technique in product usage process [Unknown]
  - Drug dose omission [Unknown]
